FAERS Safety Report 11165359 (Version 1)
Quarter: 2015Q2

REPORT INFORMATION
  Report Type: Spontaneous
  Country: SE (occurrence: SE)
  Receive Date: 20150604
  Receipt Date: 20150604
  Transmission Date: 20150821
  Serious: Yes (Other)
  Sender: FDA-Public Use
  Company Number: SE-ASTRAZENECA-2015SE52552

PATIENT
  Sex: Female

DRUGS (1)
  1. ENTOCORT [Suspect]
     Active Substance: BUDESONIDE
     Route: 065

REACTIONS (6)
  - Pruritus [Unknown]
  - Peripheral swelling [Unknown]
  - Headache [Unknown]
  - Vomiting [Unknown]
  - Amenorrhoea [Not Recovered/Not Resolved]
  - Malaise [Not Recovered/Not Resolved]
